FAERS Safety Report 6802032 (Version 14)
Quarter: 2013Q3

REPORT INFORMATION
  Report Type: Spontaneous
  Country: US (occurrence: US)
  Receive Date: 20081103
  Receipt Date: 20130918
  Transmission Date: 20140515
  Serious: Yes (Hospitalization, Disabling, Other)
  Sender: FDA-Public Use
  Company Number: US-ROCHE-552248

PATIENT
  Age: 33 Year
  Sex: Female
  Weight: 90.7 kg

DRUGS (3)
  1. ACCUTANE [Suspect]
     Indication: ACNE
     Route: 065
     Dates: start: 20001101, end: 20010101
  2. ACCUTANE [Suspect]
     Dosage: 40 MG, 80 MG, 40 MG
     Route: 065
     Dates: start: 20010102, end: 20010219
  3. ACCUTANE [Suspect]
     Route: 065
     Dates: start: 20010220, end: 20010320

REACTIONS (12)
  - Colitis ulcerative [Not Recovered/Not Resolved]
  - Crohn^s disease [Not Recovered/Not Resolved]
  - Inflammatory bowel disease [Not Recovered/Not Resolved]
  - Depression [Unknown]
  - Osteopenia [Recovering/Resolving]
  - Haemorrhoids [Unknown]
  - Intestinal obstruction [Unknown]
  - Metabolic syndrome [Unknown]
  - Dry skin [Unknown]
  - Lip dry [Unknown]
  - Arthralgia [Recovered/Resolved]
  - Headache [Recovered/Resolved]
